FAERS Safety Report 10555183 (Version 2)
Quarter: 2014Q4

REPORT INFORMATION
  Report Type: Spontaneous
  Country: US (occurrence: US)
  Receive Date: 20141030
  Receipt Date: 20141030
  Transmission Date: 20150529
  Serious: Yes (Hospitalization)
  Sender: FDA-Public Use
  Company Number: US-CUBIST PHARMACEUTICALS, INC.-2014CBST000700

PATIENT

DRUGS (8)
  1. CUBICIN [Suspect]
     Active Substance: DAPTOMYCIN
     Indication: OFF LABEL USE
     Dosage: UNK
  2. HEPARIN [Concomitant]
     Active Substance: HEPARIN SODIUM
     Indication: THROMBOSIS PROPHYLAXIS
     Dosage: 5000 UT, TID
     Route: 058
     Dates: start: 20140420, end: 20140515
  3. VANCOMYCIN [Concomitant]
     Active Substance: VANCOMYCIN
     Indication: EXTRADURAL ABSCESS
     Dosage: 1.75 G, BID
     Route: 042
     Dates: start: 20140418, end: 20140509
  4. CUBICIN [Suspect]
     Active Substance: DAPTOMYCIN
     Indication: EXTRADURAL ABSCESS
     Dosage: 400 MG, QD
     Route: 042
     Dates: start: 20140509, end: 20140513
  5. IMIPENEM [Concomitant]
     Active Substance: IMIPENEM
     Indication: PRODUCT USED FOR UNKNOWN INDICATION
     Dosage: UNK UNK, UNK
     Route: 065
  6. PERCOCET [Concomitant]
     Active Substance: ACETAMINOPHEN\OXYCODONE HYDROCHLORIDE
     Indication: PAIN
     Dosage: 5/325 MG, Q4H/P.R.N
     Route: 048
     Dates: start: 20140502, end: 20140515
  7. VANCOMYCIN [Concomitant]
     Active Substance: VANCOMYCIN
     Dosage: UNK UNK, UNK
     Route: 065
     Dates: start: 20140513
  8. ZOSYN [Concomitant]
     Active Substance: PIPERACILLIN SODIUM\TAZOBACTAM SODIUM
     Indication: EXTRADURAL ABSCESS
     Dosage: 3.375 G, Q6H
     Route: 042
     Dates: start: 20140418, end: 20140515

REACTIONS (5)
  - Haemoglobin decreased [Unknown]
  - Rash pruritic [Recovered/Resolved]
  - Rash generalised [Recovered/Resolved]
  - Rash maculo-papular [Recovered/Resolved]
  - Red blood cell count decreased [Unknown]

NARRATIVE: CASE EVENT DATE: 20140511
